FAERS Safety Report 11363263 (Version 1)
Quarter: 2015Q3

REPORT INFORMATION
  Report Type: Spontaneous
  Country: GB (occurrence: None)
  Receive Date: 20150807
  Receipt Date: 20150807
  Transmission Date: 20151125
  Serious: Yes (Hospitalization, Other)
  Sender: FDA-Public Use
  Company Number: CL-644-2015

PATIENT
  Age: 31 Year
  Sex: Male

DRUGS (2)
  1. METRONIDAZOLE. [Suspect]
     Active Substance: METRONIDAZOLE
     Indication: APPENDICITIS
     Dosage: 500 MG THREE DOES IV
     Route: 042
     Dates: start: 20150705, end: 20150705
  2. CEFUROXIME UNK [Suspect]
     Active Substance: CEFUROXIME
     Indication: APPENDICITIS
     Dosage: 1.5 G THREE DOSES IV
     Route: 042
     Dates: start: 20150705, end: 20150705

REACTIONS (7)
  - Palpitations [None]
  - Dyspnoea [None]
  - Blepharospasm [None]
  - Vision blurred [None]
  - VIIth nerve paralysis [None]
  - Paralysis [None]
  - Lack of spontaneous speech [None]

NARRATIVE: CASE EVENT DATE: 20150705
